FAERS Safety Report 14783249 (Version 2)
Quarter: 2018Q2

REPORT INFORMATION
  Report Type: Report from Study
  Country: None (occurrence: CO)
  Receive Date: 20180420
  Receipt Date: 20180609
  Transmission Date: 20180711
  Serious: Yes (Hospitalization, Other)
  Sender: FDA-Public Use
  Company Number: CO-ABBVIE-18K-036-2260426-00

PATIENT
  Age: 49 Year
  Sex: Male

DRUGS (1)
  1. HUMIRA [Suspect]
     Active Substance: ADALIMUMAB
     Indication: RHEUMATOID ARTHRITIS
     Route: 058
     Dates: start: 20131021, end: 20170720

REACTIONS (12)
  - Anaemia [Recovering/Resolving]
  - Nephrolithiasis [Recovering/Resolving]
  - Urinary tract infection [Recovered/Resolved]
  - Back pain [Not Recovered/Not Resolved]
  - Psychiatric symptom [Unknown]
  - Asthenia [Recovering/Resolving]
  - Testicular pain [Not Recovered/Not Resolved]
  - Fatigue [Recovering/Resolving]
  - Procedural complication [Unknown]
  - Nephrolithiasis [Recovered/Resolved]
  - Arthralgia [Unknown]
  - Dizziness [Recovering/Resolving]

NARRATIVE: CASE EVENT DATE: 2018
